FAERS Safety Report 9440733 (Version 1)
Quarter: 2013Q3

REPORT INFORMATION
  Report Type: Spontaneous
  Country: DZ (occurrence: DZ)
  Receive Date: 20130805
  Receipt Date: 20130805
  Transmission Date: 20140515
  Serious: Yes (Hospitalization, Other)
  Sender: FDA-Public Use
  Company Number: DZ-ROCHE-1247330

PATIENT
  Age: 39 Year
  Sex: Female

DRUGS (6)
  1. MABTHERA [Suspect]
     Indication: RHEUMATOID ARTHRITIS
     Route: 042
     Dates: start: 201002, end: 201002
  2. MABTHERA [Suspect]
     Route: 042
     Dates: start: 201011
  3. MABTHERA [Suspect]
     Route: 042
     Dates: start: 2011
  4. MABTHERA [Suspect]
     Route: 042
     Dates: start: 201203
  5. MABTHERA [Suspect]
     Route: 042
     Dates: start: 20130409
  6. MABTHERA [Suspect]
     Route: 042
     Dates: start: 20130423, end: 20130423

REACTIONS (14)
  - Localised infection [Recovered/Resolved]
  - Skin disorder [Recovered/Resolved]
  - Pain [Not Recovered/Not Resolved]
  - Local swelling [Recovered/Resolved]
  - General physical condition abnormal [Recovered/Resolved]
  - Pyrexia [Recovered/Resolved]
  - White blood cell count increased [Recovered/Resolved]
  - C-reactive protein increased [Recovered/Resolved]
  - Red blood cell sedimentation rate increased [Recovered/Resolved]
  - Disease progression [Unknown]
  - Arthritis [Unknown]
  - Hyperkeratosis [Unknown]
  - Asthenia [Unknown]
  - Thrombophlebitis [Not Recovered/Not Resolved]
